FAERS Safety Report 7077680 (Version 2)
Quarter: 2014Q1

REPORT INFORMATION
  Report Type: Spontaneous
  Country: US (occurrence: None)
  Receive Date: 20090803
  Receipt Date: 20140108
  Transmission Date: 20141002
  Serious: Yes (Hospitalization, Other)
  Sender: FDA-Public Use
  Company Number: 2009S1005984

PATIENT
  Age: 55 Year
  Sex: Male
  Weight: 81.19 kg

DRUGS (1)
  1. SODIUM PHOSPHATE [Suspect]
     Indication: BOWEL PREPARATION
     Dosage: 90 ML, 2 IN 24 HOURS, ORAL
     Route: 048
     Dates: start: 20050629, end: 20050629

REACTIONS (3)
  - Renal failure [None]
  - Oedema peripheral [None]
  - Fatigue [None]
